FAERS Safety Report 8088901-7 (Version None)
Quarter: 2012Q1

REPORT INFORMATION
  Report Type: 
  Country: None (occurrence: None)
  Receive Date: 20120128
  Receipt Date: 20110629
  Transmission Date: 20120608
  Serious: No
  Sender: FDA-Public Use
  Company Number: US-ABBOTT-10P-163-0656303-00

PATIENT
  Sex: Female
  Weight: 56.75 kg

DRUGS (10)
  1. TRAMADOL HCL [Concomitant]
     Indication: PAIN
  2. HYOMAX SR [Concomitant]
     Indication: MUSCLE SPASMS
  3. ONDANSETRON HCL [Concomitant]
     Indication: NAUSEA
     Dosage: 1 TAB EVERY 8-12 HOURS
  4. HUMIRA [Suspect]
     Indication: CROHN'S DISEASE
     Dates: start: 20100101
  5. TRAMADOL HCL [Concomitant]
     Dosage: UNKNOWN STRENGTH
     Route: 048
  6. PROMETHAZINE [Concomitant]
     Indication: NAUSEA
     Dosage: EVERY 4-6 HOURS AS NEEDED
  7. PROMETHAZINE [Concomitant]
  8. TEMAZEPAM [Concomitant]
     Indication: INSOMNIA
     Dosage: 2 AT BEDTIME
     Route: 048
  9. LEXAPRO [Concomitant]
     Indication: DEPRESSION
  10. TRAZODONE HCL [Concomitant]
     Indication: DEPRESSION

REACTIONS (8)
  - CROHN'S DISEASE [None]
  - ABDOMINAL PAIN [None]
  - EYE SWELLING [None]
  - NAUSEA [None]
  - INCORRECT STORAGE OF DRUG [None]
  - DRUG INEFFECTIVE [None]
  - DIARRHOEA [None]
  - URTICARIA [None]
